FAERS Safety Report 16206043 (Version 1)
Quarter: 2019Q2

REPORT INFORMATION
  Report Type: Spontaneous
  Country: US (occurrence: US)
  Receive Date: 20190312
  Receipt Date: 20190312
  Transmission Date: 20190711
  Serious: Yes (Other)
  Sender: FDA-Public Use
  Company Number: None

PATIENT

DRUGS (1)
  1. OSELTAMIVIR PHOSPHATE 75MG CAPSULE [Suspect]
     Active Substance: OSELTAMIVIR PHOSPHATE
     Indication: INFLUENZA
     Dosage: ?          QUANTITY:1 DF DOSAGE FORM;?
     Route: 048
     Dates: start: 20190225, end: 20190226

REACTIONS (16)
  - Condition aggravated [None]
  - Epistaxis [None]
  - Dysuria [None]
  - Dysgeusia [None]
  - Plicated tongue [None]
  - Mucosal dryness [None]
  - Swelling [None]
  - Influenza [None]
  - Dizziness [None]
  - Feeling abnormal [None]
  - Dehydration [None]
  - Vomiting [None]
  - Swollen tongue [None]
  - Paradoxical drug reaction [None]
  - Nausea [None]
  - Diarrhoea [None]

NARRATIVE: CASE EVENT DATE: 20190225
